FAERS Safety Report 19561319 (Version 1)
Quarter: 2021Q3

REPORT INFORMATION
  Report Type: Spontaneous
  Country: US (occurrence: US)
  Receive Date: 20210715
  Receipt Date: 20210715
  Transmission Date: 20211014
  Serious: Yes (Other)
  Sender: FDA-Public Use
  Company Number: None

PATIENT
  Age: 33 Year
  Sex: Female
  Weight: 139.5 kg

DRUGS (20)
  1. KEFLEX [Concomitant]
     Active Substance: CEPHALEXIN
  2. SOMA [Concomitant]
     Active Substance: CARISOPRODOL
  3. METOPROLOL TARTRATE. [Concomitant]
     Active Substance: METOPROLOL TARTRATE
  4. MULTIVITAMIN [Concomitant]
     Active Substance: VITAMINS
  5. NEURONTIN [Concomitant]
     Active Substance: GABAPENTIN
  6. ZYRTEC [Concomitant]
     Active Substance: CETIRIZINE HYDROCHLORIDE
  7. SYNTHROID [Concomitant]
     Active Substance: LEVOTHYROXINE SODIUM
  8. LUNESTA [Concomitant]
     Active Substance: ESZOPICLONE
  9. VISTARIL [Concomitant]
     Active Substance: HYDROXYZINE PAMOATE
  10. CYMBALTA [Concomitant]
     Active Substance: DULOXETINE HYDROCHLORIDE
  11. MELATONIN [Concomitant]
     Active Substance: MELATONIN
  12. USTELL [Concomitant]
     Active Substance: HYOSCYAMINE SULFATE\METHENAMINE\METHYLENE BLUE\PHENYL SALICYLATE\SODIUM PHOSPHATE, MONOBASIC, MONOHYDRATE
  13. PEPCID [Concomitant]
     Active Substance: FAMOTIDINE
  14. SULFAMETH/TRIMETHOPRIM 800/160MG TB [Suspect]
     Active Substance: SULFAMETHOXAZOLE\TRIMETHOPRIM
     Indication: URINARY TRACT INFECTION
     Dosage: ?          QUANTITY:20 TABLET(S);?
     Route: 048
     Dates: start: 20210708, end: 20210713
  15. ATORVASTATIN [Concomitant]
     Active Substance: ATORVASTATIN
  16. MICROGESTIN [Concomitant]
     Active Substance: ETHINYL ESTRADIOL\NORETHINDRONE ACETATE
  17. LINZESS [Concomitant]
     Active Substance: LINACLOTIDE
  18. MOTRIN [Concomitant]
     Active Substance: IBUPROFEN
  19. NEXIUM [Concomitant]
     Active Substance: ESOMEPRAZOLE MAGNESIUM
  20. NAPROXEN. [Concomitant]
     Active Substance: NAPROXEN

REACTIONS (1)
  - Movement disorder [None]

NARRATIVE: CASE EVENT DATE: 20210713
